FAERS Safety Report 9190560 (Version 2)
Quarter: 2013Q2

REPORT INFORMATION
  Report Type: Spontaneous
  Country: US (occurrence: None)
  Receive Date: 20120703
  Receipt Date: 20121031
  Transmission Date: 20140414
  Serious: Yes (Other)
  Sender: FDA-Public Use
  Company Number: PHEH2012US004901

PATIENT
  Age: 31 Year
  Sex: Female
  Weight: 134 kg

DRUGS (6)
  1. GILENYA [Suspect]
     Indication: MULTIPLE SCLEROSIS
     Dosage: UNK UKN , UNK
     Route: 048
  2. BACLOFEN (BACLOFEN) [Concomitant]
  3. FIORICET (BUTAMOL , CAFFEINE, PARACETAMOL) [Concomitant]
  4. TRAZODONE (TRAZODONE) [Concomitant]
  5. PROTONIX (PANTOPRAZOLE) [Concomitant]
  6. TRAMADOL (TRAMADOL) [Concomitant]

REACTIONS (3)
  - Heart rate increased [None]
  - Chest pain [None]
  - Heart rate irregular [None]
